FAERS Safety Report 6660270-6 (Version None)
Quarter: 2010Q1

REPORT INFORMATION
  Report Type: 
  Country: None (occurrence: None)
  Receive Date: 20100331
  Receipt Date: 20100311
  Transmission Date: 20100710
  Serious: No
  Sender: FDA-Public Use
  Company Number: 2009BI040102

PATIENT
  Age: 44 Year
  Sex: Female

DRUGS (1)
  1. TYSABRI [Suspect]
     Indication: MULTIPLE SCLEROSIS
     Route: 042
     Dates: start: 20081204, end: 20091101

REACTIONS (7)
  - DISSOCIATION [None]
  - FATIGUE [None]
  - GAIT DISTURBANCE [None]
  - LOCALISED INFECTION [None]
  - MENTAL IMPAIRMENT [None]
  - THINKING ABNORMAL [None]
  - VISUAL IMPAIRMENT [None]
